FAERS Safety Report 24894185 (Version 2)
Quarter: 2025Q1

REPORT INFORMATION
  Report Type: Report from Study
  Country: US (occurrence: US)
  Receive Date: 20250128
  Receipt Date: 20250305
  Transmission Date: 20250409
  Serious: No
  Sender: SUNOVION
  Company Number: US-SUMITOMO PHARMA SWITZERLAND GMBH-2025SPA000536

PATIENT

DRUGS (1)
  1. ORGOVYX [Suspect]
     Active Substance: RELUGOLIX
     Indication: Prostate cancer
     Dosage: 120 MG, QD
     Route: 048
     Dates: start: 20241206

REACTIONS (11)
  - Nasopharyngitis [Unknown]
  - Joint swelling [Unknown]
  - Heart rate increased [Recovering/Resolving]
  - White blood cell count decreased [Unknown]
  - Blood glucose increased [Unknown]
  - Hypertension [Recovering/Resolving]
  - Fatigue [Unknown]
  - Hot flush [Unknown]
  - Red blood cell count decreased [Unknown]
  - Haemoglobin decreased [Unknown]
  - Incorrect dose administered [Unknown]
